FAERS Safety Report 10403319 (Version 3)
Quarter: 2014Q4

REPORT INFORMATION
  Report Type: Report from Study
  Country: BR (occurrence: BR)
  Receive Date: 20140822
  Receipt Date: 20141113
  Transmission Date: 20150528
  Serious: Yes (Other)
  Sender: FDA-Public Use
  Company Number: BR-US-EMD SERONO, INC.-7314482

PATIENT
  Sex: Male

DRUGS (1)
  1. REBIF [Suspect]
     Active Substance: INTERFERON BETA-1A
     Indication: RELAPSING-REMITTING MULTIPLE SCLEROSIS
     Dates: start: 20140704, end: 201409

REACTIONS (9)
  - Device issue [Unknown]
  - Stress [Unknown]
  - Drug administered at inappropriate site [Unknown]
  - Drug dose omission [Unknown]
  - Device difficult to use [Unknown]
  - Petit mal epilepsy [Not Recovered/Not Resolved]
  - Injection site pain [Unknown]
  - Injection site reaction [Recovered/Resolved]
  - Epilepsy [Not Recovered/Not Resolved]
